FAERS Safety Report 15625045 (Version 1)
Quarter: 2018Q4

REPORT INFORMATION
  Report Type: Spontaneous
  Country: US (occurrence: US)
  Receive Date: 20181115
  Receipt Date: 20181115
  Transmission Date: 20190205
  Serious: No
  Sender: FDA-Public Use
  Company Number: None

PATIENT
  Age: 58 Year
  Sex: Female

DRUGS (1)
  1. LEVOFLOXACIN. [Suspect]
     Active Substance: LEVOFLOXACIN
     Indication: DIVERTICULITIS
     Route: 048
     Dates: start: 20180909, end: 20180917

REACTIONS (8)
  - Dysstasia [None]
  - Tendon disorder [None]
  - Pain in extremity [None]
  - Musculoskeletal stiffness [None]
  - Arthralgia [None]
  - Tenderness [None]
  - Oedema peripheral [None]
  - Tendon discomfort [None]

NARRATIVE: CASE EVENT DATE: 20180917
